FAERS Safety Report 5670634-5 (Version None)
Quarter: 2008Q1

REPORT INFORMATION
  Report Type: 
  Country: None (occurrence: None)
  Receive Date: 20080314
  Receipt Date: 20080314
  Transmission Date: 20080703
  Serious: No
  Sender: FDA-Public Use
  Company Number: None

PATIENT
  Age: 22 Year
  Sex: Female
  Weight: 70.7611 kg

DRUGS (2)
  1. CREST PRO-HEALTH NIGHT CETYLPYRIDINIUM CHLORIDE 0.07% CREST/PROCTOR + [Suspect]
     Indication: GINGIVITIS
     Dosage: 20 ML TWICE A DAY DENTAL
     Route: 004
     Dates: start: 20080311, end: 20080312
  2. CREST PRO-HEALTH NIGHT CETYLPYRIDINIUM CHLORIDE 0.07% CREST/PROCTOR + [Suspect]
     Indication: OROPHARYNGEAL PLAQUE
     Dosage: 20 ML TWICE A DAY DENTAL
     Route: 004
     Dates: start: 20080311, end: 20080312

REACTIONS (4)
  - AGEUSIA [None]
  - DYSGEUSIA [None]
  - GLOSSODYNIA [None]
  - TOOTH DISCOLOURATION [None]
